FAERS Safety Report 5195257-6 (Version None)
Quarter: 2006Q4

REPORT INFORMATION
  Report Type: 
  Country: None (occurrence: None)
  Receive Date: 20061130
  Receipt Date: 20060626
  Transmission Date: 20070319
  Serious: Yes (Other)
  Sender: FDA-Public Use
  Company Number: WAES 0606USA04925

PATIENT
  Age: 77 Year
  Sex: Female

DRUGS (4)
  1. FOSAMAX [Suspect]
     Indication: OSTEOPOROSIS
     Dosage: 70 MG/WKY/PO;  UNK/DAILY/PO
     Route: 048
     Dates: end: 20030101
  2. FOSAMAX [Suspect]
     Indication: SCOLIOSIS
     Dosage: 70 MG/WKY/PO;  UNK/DAILY/PO
     Route: 048
     Dates: end: 20030101
  3. ASPIRIN [Concomitant]
  4. THERAPY UNSPECIFIED [Concomitant]

REACTIONS (5)
  - HYPOAESTHESIA ORAL [None]
  - INTENTIONAL DRUG MISUSE [None]
  - ORAL PAIN [None]
  - OSTEONECROSIS [None]
  - TOOTH FRACTURE [None]
